FAERS Safety Report 5564747-6 (Version None)
Quarter: 2007Q4

REPORT INFORMATION
  Report Type: 
  Country: None (occurrence: None)
  Receive Date: 20071218
  Receipt Date: 20071206
  Transmission Date: 20080405
  Serious: Yes (Life-Threatening, Hospitalization)
  Sender: FDA-Public Use
  Company Number: FR-ROCHE-535732

PATIENT
  Age: 54 Year
  Sex: Female

DRUGS (4)
  1. CELLCEPT [Suspect]
     Route: 065
  2. ANTIBIOTIC NOS [Concomitant]
  3. NEORAL [Concomitant]
  4. CORTICOSTEROIDS [Concomitant]
     Dosage: DRUG: CORTICOID

REACTIONS (3)
  - CANDIDIASIS [None]
  - CELL DEATH [None]
  - HEPATIC FAILURE [None]
